FAERS Safety Report 24302546 (Version 2)
Quarter: 2024Q4

REPORT INFORMATION
  Report Type: Spontaneous
  Country: US (occurrence: US)
  Receive Date: 20240910
  Receipt Date: 20241104
  Transmission Date: 20250114
  Serious: Yes (Other)
  Sender: PFIZER
  Company Number: US-PFIZER INC-202400250366

PATIENT
  Age: 37 Year
  Sex: Female
  Weight: 81.65 kg

DRUGS (1)
  1. GENOTROPIN [Suspect]
     Active Substance: SOMATROPIN
     Dosage: UNK

REACTIONS (3)
  - Device material issue [Unknown]
  - Injury associated with device [Unknown]
  - Limb injury [Unknown]

NARRATIVE: CASE EVENT DATE: 20240801
